FAERS Safety Report 15323184 (Version 2)
Quarter: 2018Q3

REPORT INFORMATION
  Report Type: Spontaneous
  Country: US (occurrence: US)
  Receive Date: 20180827
  Receipt Date: 20180914
  Transmission Date: 20181010
  Serious: No
  Sender: FDA-Public Use
  Company Number: US-PFIZER INC-2018342339

PATIENT
  Age: 8 Year
  Sex: Female

DRUGS (2)
  1. EUCRISA [Suspect]
     Active Substance: CRISABOROLE
     Dosage: UNK, 1X/DAY
     Route: 061
     Dates: start: 20180702
  2. EUCRISA [Suspect]
     Active Substance: CRISABOROLE
     Indication: VITILIGO
     Dosage: UNK UNK, 1X/DAY
     Route: 061
     Dates: start: 20180702

REACTIONS (1)
  - Drug ineffective for unapproved indication [Unknown]
